FAERS Safety Report 16705526 (Version 1)
Quarter: 2019Q4

REPORT INFORMATION
  Report Type: Spontaneous
  Country: US (occurrence: US)
  Receive Date: 20190814
  Receipt Date: 20190814
  Transmission Date: 20200122
  Serious: Yes (Life-Threatening, Other)
  Sender: FDA-Public Use
  Company Number: None

PATIENT
  Age: 54 Year
  Sex: Female

DRUGS (1)
  1. AUSTEDO [Suspect]
     Active Substance: DEUTETRABENAZINE
     Indication: TREMOR
     Route: 048
     Dates: start: 20190716, end: 20190814

REACTIONS (2)
  - Depression [None]
  - Suicidal ideation [None]

NARRATIVE: CASE EVENT DATE: 20190814
